FAERS Safety Report 6609492-0 (Version None)
Quarter: 2010Q1

REPORT INFORMATION
  Report Type: 
  Country: None (occurrence: None)
  Receive Date: 20100302
  Receipt Date: 20100219
  Transmission Date: 20100710
  Serious: Yes (Hospitalization)
  Sender: FDA-Public Use
  Company Number: US-JNJFOC-20100210284

PATIENT
  Age: 5 Year
  Sex: Female
  Weight: 21.32 kg

DRUGS (4)
  1. CHILDRENS TYLENOL [Suspect]
     Indication: INFLUENZA
     Dosage: (11:30AM AND 2:30PM)
     Route: 048
  2. CHILDRENS TYLENOL [Suspect]
     Route: 048
  3. TRIAMINIC COUGH + SORE THROAT [Suspect]
     Indication: INFLUENZA
     Dosage: (9:00AM, 1:00PM AND 5:00PM)
     Route: 048
  4. TRIAMINIC COUGH + SORE THROAT [Suspect]
     Route: 048

REACTIONS (7)
  - ACCIDENTAL OVERDOSE [None]
  - DECREASED APPETITE [None]
  - DEHYDRATION [None]
  - DRUG ADMINISTRATION ERROR [None]
  - HEPATIC ENZYME INCREASED [None]
  - INAPPROPRIATE SCHEDULE OF DRUG ADMINISTRATION [None]
  - VOMITING [None]
